FAERS Safety Report 8275246-5 (Version None)
Quarter: 2012Q2

REPORT INFORMATION
  Report Type: 
  Country: None (occurrence: None)
  Receive Date: 20120411
  Receipt Date: 20120403
  Transmission Date: 20120825
  Serious: No
  Sender: FDA-Public Use
  Company Number: US-CELGENEUS-163-21880-12012912

PATIENT
  Sex: Female

DRUGS (10)
  1. REVLIMID [Suspect]
     Dosage: 15 MILLIGRAM
     Route: 048
     Dates: start: 20120124
  2. COLACE [Concomitant]
     Route: 065
  3. REVLIMID [Suspect]
     Indication: MULTIPLE MYELOMA
     Dosage: 15 MILLIGRAM
     Route: 048
     Dates: start: 20110516
  4. NOVOLIN 70/30 [Concomitant]
     Route: 065
  5. DECADRON [Concomitant]
     Route: 065
  6. ALBUTEROL [Concomitant]
     Route: 065
  7. LOPRESSOR [Concomitant]
     Route: 065
  8. PROTONIX [Concomitant]
     Route: 065
  9. COUMADIN [Concomitant]
     Route: 065
  10. MS CONTIN [Concomitant]
     Route: 065

REACTIONS (1)
  - MULTIPLE MYELOMA [None]
